FAERS Safety Report 8774273 (Version 1)
Quarter: 2012Q4

REPORT INFORMATION
  Report Type: 
  Country: US (occurrence: US)
  Receive Date: 20120906
  Receipt Date: 20120906
  Transmission Date: 20130627
  Serious: Yes (Other)
  Sender: FDA-Public Use
  Company Number: US-PFIZER INC-2012219136

PATIENT
  Age: 69 Year
  Sex: Male
  Weight: 82.54 kg

DRUGS (8)
  1. LIPITOR [Suspect]
     Indication: BLOOD CHOLESTEROL INCREASED
     Dosage: UNK, daily
     Dates: end: 2012
  2. ATORVASTATIN CALCIUM [Suspect]
     Indication: BLOOD CHOLESTEROL INCREASED
     Dosage: UNK, daily
     Dates: start: 2012
  3. NEURONTIN [Concomitant]
     Indication: BACK DISORDER
     Dosage: 3200 mg, UNK
  4. NEURONTIN [Concomitant]
     Indication: NERVE INJURY
  5. METHADONE [Concomitant]
     Indication: BACK DISORDER
     Dosage: 10 mg, 2x/day
  6. METHADONE [Concomitant]
     Indication: NERVE INJURY
  7. OXYCODONE [Concomitant]
     Indication: BACK DISORDER
     Dosage: 4 tablets, daily
  8. OXYCODONE [Concomitant]
     Indication: NERVE INJURY

REACTIONS (2)
  - Thyroid disorder [Not Recovered/Not Resolved]
  - Muscle spasms [Not Recovered/Not Resolved]
